FAERS Safety Report 22145792 (Version 1)
Quarter: 2023Q1

REPORT INFORMATION
  Report Type: Spontaneous
  Country: US (occurrence: US)
  Receive Date: 20230328
  Receipt Date: 20230328
  Transmission Date: 20230418
  Serious: No
  Sender: FDA-Public Use
  Company Number: US-CSLP-11105242481-V002YT9M-16

PATIENT
  Age: 47 Year
  Sex: Male

DRUGS (1)
  1. ANTICOAGULANT SODIUM CITRATE [Suspect]
     Active Substance: SODIUM CITRATE
     Indication: Anticoagulant therapy
     Route: 050
     Dates: start: 20230309, end: 20230309

REACTIONS (5)
  - Pain [Recovering/Resolving]
  - Hyperhidrosis [Recovering/Resolving]
  - Feeling hot [Recovering/Resolving]
  - Muscle spasms [Recovering/Resolving]
  - Cold sweat [Recovering/Resolving]

NARRATIVE: CASE EVENT DATE: 20230309
